FAERS Safety Report 21039681 (Version 4)
Quarter: 2022Q3

REPORT INFORMATION
  Report Type: Report from Study
  Country: DE (occurrence: DE)
  Receive Date: 20220704
  Receipt Date: 20220809
  Transmission Date: 20221027
  Serious: Yes (Hospitalization)
  Sender: FDA-Public Use
  Company Number: DE-EXELIXIS-XL18422053411

PATIENT

DRUGS (6)
  1. CABOZANTINIB [Suspect]
     Active Substance: CABOZANTINIB
     Indication: Renal cell carcinoma
     Dosage: 60 MG, QD
     Dates: start: 20220412, end: 20220519
  2. CABOZANTINIB [Suspect]
     Active Substance: CABOZANTINIB
     Dosage: 20 MG, QD
     Dates: start: 20220623, end: 20220714
  3. OXYCODONE [Concomitant]
     Active Substance: OXYCODONE
  4. METAMIZOLE [Concomitant]
     Active Substance: METAMIZOLE
  5. PANTOPRAZOLE [Concomitant]
     Active Substance: PANTOPRAZOLE
  6. CALCIUM CARBONATE [Concomitant]
     Active Substance: CALCIUM CARBONATE

REACTIONS (7)
  - Colitis [Recovered/Resolved]
  - Malignant neoplasm progression [Unknown]
  - Intussusception [Unknown]
  - C-reactive protein increased [Recovering/Resolving]
  - Lipase increased [Recovered/Resolved]
  - Lipase increased [Not Recovered/Not Resolved]
  - Abdominal pain [Not Recovered/Not Resolved]

NARRATIVE: CASE EVENT DATE: 20220519
